FAERS Safety Report 7988322-9 (Version None)
Quarter: 2011Q4

REPORT INFORMATION
  Report Type: 
  Country: None (occurrence: None)
  Receive Date: 20111216
  Receipt Date: 20111212
  Transmission Date: 20120403
  Serious: Yes (Other)
  Sender: FDA-Public Use
  Company Number: NL-COVIDIEN/TYCO HEALTHCARE/MALLINCKRODT-T201102887

PATIENT

DRUGS (1)
  1. OPTIRAY 160 [Suspect]
     Indication: PRODUCT USED FOR UNKNOWN INDICATION
     Dosage: UNK
     Dates: start: 20110101, end: 20110101

REACTIONS (1)
  - NEPHROPATHY TOXIC [None]
